FAERS Safety Report 24353257 (Version 1)
Quarter: 2024Q3

REPORT INFORMATION
  Report Type: Spontaneous
  Country: BE (occurrence: BE)
  Receive Date: 20240923
  Receipt Date: 20240923
  Transmission Date: 20241017
  Serious: No
  Sender: ROCHE
  Company Number: BE-ROCHE-3449020

PATIENT
  Sex: Female

DRUGS (2)
  1. HERCEPTIN [Suspect]
     Active Substance: TRASTUZUMAB
     Indication: Triple negative breast cancer
     Route: 065
  2. XELODA [Suspect]
     Active Substance: CAPECITABINE
     Indication: Triple negative breast cancer
     Route: 065

REACTIONS (1)
  - Disease progression [Unknown]
